FAERS Safety Report 23784763 (Version 1)
Quarter: 2024Q2

REPORT INFORMATION
  Report Type: Report from Study
  Country: US (occurrence: US)
  Receive Date: 20240425
  Receipt Date: 20240425
  Transmission Date: 20240716
  Serious: Yes (Death)
  Sender: FDA-Public Use
  Company Number: US-TAIHOP-2024-004237

PATIENT
  Age: 54 Year
  Sex: Male
  Weight: 58.06 kg

DRUGS (1)
  1. LYTGOBI [Suspect]
     Active Substance: FUTIBATINIB
     Indication: Cholangiocarcinoma
     Route: 048
     Dates: start: 20240319, end: 20240403

REACTIONS (1)
  - Death [Fatal]

NARRATIVE: CASE EVENT DATE: 20240403
